FAERS Safety Report 8771104 (Version 1)
Quarter: 2012Q4

REPORT INFORMATION
  Report Type: 
  Country: FR (occurrence: FR)
  Receive Date: 20120906
  Receipt Date: 20120906
  Transmission Date: 20130627
  Serious: Yes (Hospitalization)
  Sender: FDA-Public Use
  Company Number: FR-PFIZER INC-2012213417

PATIENT
  Age: 74 Year
  Sex: Female

DRUGS (4)
  1. NEURONTIN [Suspect]
     Indication: EPILEPSY
     Dosage: 800 mg, 2x/day
     Route: 048
     Dates: start: 2002
  2. SERETIDE DISKUS [Suspect]
     Indication: ASTHMA
     Dosage: UNK
     Route: 055
  3. PARACETAMOL [Suspect]
     Indication: OSTEOARTHRITIS
     Dosage: 1000 mg, 1x/day
     Route: 048
  4. ACTONEL [Suspect]
     Indication: OSTEOPOROSIS
     Dosage: 35 mg, weekly
     Route: 048

REACTIONS (2)
  - Eosinophilia [Not Recovered/Not Resolved]
  - Diarrhoea [Not Recovered/Not Resolved]
